FAERS Safety Report 18745859 (Version 1)
Quarter: 2021Q1

REPORT INFORMATION
  Report Type: Spontaneous
  Country: FR (occurrence: FR)
  Receive Date: 20210115
  Receipt Date: 20210115
  Transmission Date: 20210419
  Serious: Yes (Hospitalization)
  Sender: FDA-Public Use
  Company Number: FR-009507513-2101FRA003725

PATIENT
  Age: 61 Year
  Sex: Female
  Weight: 58 kg

DRUGS (6)
  1. TEMODAL [Suspect]
     Active Substance: TEMOZOLOMIDE
     Indication: GLIOBLASTOMA
     Dosage: 115 MILLIGRAM, QD
     Route: 048
     Dates: start: 20201027, end: 20201130
  2. KEPPRA [Concomitant]
     Active Substance: LEVETIRACETAM
     Dosage: UNK
     Route: 048
  3. LANSOPRAZOLE. [Concomitant]
     Active Substance: LANSOPRAZOLE
     Dosage: UNK
     Route: 048
  4. SOLUPRED [Concomitant]
     Dosage: UNK
     Route: 048
     Dates: end: 20201214
  5. LOXEN [Concomitant]
     Dosage: UNK
     Route: 048
  6. ALPRAZOLAM. [Concomitant]
     Active Substance: ALPRAZOLAM
     Dosage: UNK
     Route: 048

REACTIONS (3)
  - Thrombocytopenia [Not Recovered/Not Resolved]
  - Pancytopenia [Recovering/Resolving]
  - Agranulocytosis [Recovered/Resolved]

NARRATIVE: CASE EVENT DATE: 20201130
